FAERS Safety Report 8796000 (Version 1)
Quarter: 2012Q4

REPORT INFORMATION
  Report Type: 
  Country: US (occurrence: US)
  Receive Date: 20120920
  Receipt Date: 20120920
  Transmission Date: 20130627
  Serious: No
  Sender: FDA-Public Use
  Company Number: US-BAYER-2012-097584

PATIENT
  Age: 74 Year
  Sex: Female
  Weight: 63 kg

DRUGS (4)
  1. ALEVE CAPLET/TABLET,MIDOL EXTENDED RELIEF CAPLET [Suspect]
     Dosage: 1 DF, BID
     Route: 048
     Dates: start: 201208
  2. MULTI VITAMIN [Concomitant]
  3. CALCIUM [Concomitant]
  4. OMEGA 3 [Concomitant]

REACTIONS (1)
  - Throat irritation [Recovered/Resolved]
